FAERS Safety Report 16336912 (Version 2)
Quarter: 2019Q2

REPORT INFORMATION
  Report Type: Spontaneous
  Country: FR (occurrence: FR)
  Receive Date: 20190521
  Receipt Date: 20190524
  Transmission Date: 20190711
  Serious: No
  Sender: FDA-Public Use
  Company Number: FR-AMGEN-FRASP2019079735

PATIENT
  Age: 72 Year
  Sex: Male

DRUGS (4)
  1. SIMVASTATINE [Concomitant]
     Active Substance: SIMVASTATIN
     Indication: HYPERCHOLESTEROLAEMIA
     Dosage: UNK
     Route: 065
  2. PERMIXON [Concomitant]
     Active Substance: HERBALS\SAW PALMETTO
     Indication: PROSTATIC DISORDER
     Dosage: UNK
     Route: 065
  3. AIMOVIG [Suspect]
     Active Substance: ERENUMAB-AOOE
     Indication: MIGRAINE
     Dosage: 70 MILLIGRAM, QMO
     Route: 065
     Dates: start: 20190503
  4. AVLOCARDYL [PROPRANOLOL HYDROCHLORIDE] [Concomitant]
     Indication: MIGRAINE
     Dosage: 160 OT, QD
     Route: 065

REACTIONS (6)
  - Headache [Unknown]
  - Decreased appetite [Unknown]
  - Hypertension [Unknown]
  - Nasopharyngitis [Unknown]
  - Sensory disturbance [Recovered/Resolved]
  - Fatigue [Unknown]

NARRATIVE: CASE EVENT DATE: 20190504
